FAERS Safety Report 8032155-4 (Version None)
Quarter: 2012Q1

REPORT INFORMATION
  Report Type: 
  Country: None (occurrence: None)
  Receive Date: 20120109
  Receipt Date: 20111014
  Transmission Date: 20120608
  Serious: Yes (Hospitalization)
  Sender: FDA-Public Use
  Company Number: US-ROCHE-1015999

PATIENT
  Age: 21 Year
  Sex: Male

DRUGS (4)
  1. LOVENOX [Concomitant]
  2. ROCEPHIN [Suspect]
     Indication: EAR INFECTION
     Route: 051
     Dates: start: 20110922, end: 20110926
  3. JANTOVEN [Suspect]
     Indication: DEEP VEIN THROMBOSIS
     Dates: start: 20110901, end: 20110925
  4. DILANTIN [Suspect]
     Indication: EPILEPSY

REACTIONS (3)
  - ANTICONVULSANT DRUG LEVEL DECREASED [None]
  - DRUG INTERACTION [None]
  - STATUS EPILEPTICUS [None]
